FAERS Safety Report 18256357 (Version 1)
Quarter: 2020Q3

REPORT INFORMATION
  Report Type: Spontaneous
  Country: AR (occurrence: AR)
  Receive Date: 20200911
  Receipt Date: 20200911
  Transmission Date: 20201103
  Serious: Yes (Hospitalization, Other)
  Sender: FDA-Public Use
  Company Number: AR-AMGEN-ARGSP2020146908

PATIENT
  Age: 73 Year
  Sex: Female

DRUGS (1)
  1. ENBREL [Suspect]
     Active Substance: ETANERCEPT
     Indication: RHEUMATOID ARTHRITIS
     Dosage: 50 MG, WEEKLY (1 DOSE PER WEEK)
     Route: 065
     Dates: start: 20110301

REACTIONS (10)
  - Device issue [Unknown]
  - Bacteraemia [Unknown]
  - Cardiovascular disorder [Unknown]
  - Osteoarthritis [Unknown]
  - Wrong technique in device usage process [Unknown]
  - Loss of consciousness [Unknown]
  - Thrombosis [Unknown]
  - Fall [Unknown]
  - Arthritis [Unknown]
  - Pain [Unknown]
